FAERS Safety Report 24536363 (Version 2)
Quarter: 2024Q4

REPORT INFORMATION
  Report Type: Report from Study
  Country: CN (occurrence: CN)
  Receive Date: 20241022
  Receipt Date: 20241025
  Transmission Date: 20250115
  Serious: Yes (Death)
  Sender: EISAI
  Company Number: CN-Eisai-EC-2024-177169

PATIENT
  Age: 64 Year
  Sex: Female
  Weight: 49.5 kg

DRUGS (4)
  1. ERIBULIN [Suspect]
     Active Substance: ERIBULIN
     Indication: Breast cancer
     Route: 041
     Dates: start: 20241016, end: 20241016
  2. CAPECITABINE [Suspect]
     Active Substance: CAPECITABINE
     Indication: Breast cancer
     Dosage: DOSE: 1000 MG AM AND 1500 MG PM
     Route: 048
     Dates: start: 20241016, end: 20241018
  3. SHENGXUENING [Concomitant]
     Indication: Anaemia
     Route: 048
     Dates: start: 20240930
  4. URSODIOL [Concomitant]
     Active Substance: URSODIOL
     Indication: Hepatic function abnormal
     Route: 048
     Dates: start: 20241016

REACTIONS (1)
  - Respiratory failure [Fatal]

NARRATIVE: CASE EVENT DATE: 20241019
